FAERS Safety Report 18538918 (Version 1)
Quarter: 2020Q4

REPORT INFORMATION
  Report Type: Spontaneous
  Country: US (occurrence: US)
  Receive Date: 20201124
  Receipt Date: 20201124
  Transmission Date: 20210114
  Serious: Yes (Hospitalization)
  Sender: FDA-Public Use
  Company Number: US-GW PHARMA-202011USGW04004

PATIENT

DRUGS (1)
  1. EPIDIOLEX [Suspect]
     Active Substance: CANNABIDIOL
     Indication: LENNOX-GASTAUT SYNDROME
     Dosage: 21.05 MG/KG, 420 MILLIGRAM, BID
     Dates: start: 20200213

REACTIONS (2)
  - Seizure cluster [Unknown]
  - Overdose [Unknown]

NARRATIVE: CASE EVENT DATE: 20200213
